FAERS Safety Report 22771060 (Version 3)
Quarter: 2024Q1

REPORT INFORMATION
  Report Type: Spontaneous
  Country: US (occurrence: US)
  Receive Date: 20230801
  Receipt Date: 20240109
  Transmission Date: 20240409
  Serious: Yes (Other)
  Sender: FDA-Public Use
  Company Number: US-BRISTOL-MYERS SQUIBB COMPANY-2023-107574

PATIENT
  Age: 81 Year
  Sex: Female

DRUGS (2)
  1. LENALIDOMIDE [Suspect]
     Active Substance: LENALIDOMIDE
     Indication: Plasma cell myeloma
     Dosage: TAKE 1 CAPSULE BY MOUTH EVERY DAY ON DAYS 1-21, THEN 7 DAYS OFF EVERY 28 DAY CYCLE
     Route: 048
     Dates: start: 20230717
  2. LENALIDOMIDE [Suspect]
     Active Substance: LENALIDOMIDE
     Dosage: TAKE 1 CAPSULE BY MOUTH EVERY DAY ON DAYS 1-21, THEN 7 DAYS OFF EVERY 28 DAY CYCLE
     Route: 048

REACTIONS (4)
  - Blood sodium decreased [Recovering/Resolving]
  - Blood potassium decreased [Recovering/Resolving]
  - Pain [Not Recovered/Not Resolved]
  - Fatigue [Unknown]
